FAERS Safety Report 4799732-5 (Version None)
Quarter: 2005Q4

REPORT INFORMATION
  Report Type: 
  Country: None (occurrence: None)
  Receive Date: 20051011
  Receipt Date: 20051011
  Transmission Date: 20060501
  Serious: Yes (Hospitalization)
  Sender: FDA-Public Use
  Company Number: None

PATIENT
  Age: 56 Year
  Sex: Male
  Weight: 127.4608 kg

DRUGS (2)
  1. CLONAZEPAM [Suspect]
     Indication: ANXIETY
     Dosage: 1 MG TID PO
     Route: 048
     Dates: start: 20050215
  2. CLONAZEPAM [Suspect]
     Indication: PANIC DISORDER
     Dosage: 1 MG TID PO
     Route: 048
     Dates: start: 20050215

REACTIONS (1)
  - CONFUSIONAL STATE [None]
